FAERS Safety Report 6888068-4 (Version None)
Quarter: 2010Q3

REPORT INFORMATION
  Report Type: 
  Country: None (occurrence: None)
  Receive Date: 20100730
  Receipt Date: 20100730
  Transmission Date: 20110219
  Serious: Yes (Disabling, Other)
  Sender: FDA-Public Use
  Company Number: BR-ABBOTT-10P-020-0659102-00

PATIENT
  Sex: Female
  Weight: 53 kg

DRUGS (2)
  1. HUMIRA [Suspect]
     Indication: RHEUMATOID ARTHRITIS
     Route: 058
     Dates: start: 20080101
  2. HUMIRA [Suspect]
     Dates: start: 20100707

REACTIONS (2)
  - NECROSIS [None]
  - VASCULITIS [None]
